FAERS Safety Report 6120183-5 (Version None)
Quarter: 2009Q1

REPORT INFORMATION
  Report Type: 
  Country: None (occurrence: None)
  Receive Date: 20090316
  Receipt Date: 20090312
  Transmission Date: 20090719
  Serious: No
  Sender: FDA-Public Use
  Company Number: US-ABBOTT-09P-163-0561977-00

PATIENT
  Sex: Female
  Weight: 73.094 kg

DRUGS (18)
  1. TRILIPIX [Suspect]
     Indication: BLOOD CHOLESTEROL INCREASED
     Route: 048
     Dates: start: 20090110, end: 20090311
  2. NEXIUM [Concomitant]
     Indication: GASTROOESOPHAGEAL REFLUX DISEASE
  3. COZAAR [Concomitant]
     Indication: BLOOD CHOLESTEROL INCREASED
  4. ZETIA [Concomitant]
     Indication: BLOOD CHOLESTEROL INCREASED
  5. MOBIC [Concomitant]
     Indication: ARTHRALGIA
  6. CLINDAMYCIN HCL [Concomitant]
     Indication: NASAL SEPTUM DISORDER
  7. METFORMIN HCL [Concomitant]
     Indication: TYPE 2 DIABETES MELLITUS
  8. BYETTA [Concomitant]
     Indication: DIABETES MELLITUS
     Dosage: 1 INJECTION IN MORNING
     Route: 058
  9. PHENOBARBITAL TAB [Concomitant]
     Indication: NAUSEA
  10. DURHIST [Concomitant]
     Indication: RESPIRATORY TRACT CONGESTION
  11. TESSALON [Concomitant]
     Indication: COUGH
  12. PATANOL [Concomitant]
     Indication: EYE PRURITUS
  13. PATANOL [Concomitant]
     Indication: LACRIMATION INCREASED
  14. ACTONEL [Concomitant]
     Indication: OSTEOPOROSIS PROPHYLAXIS
  15. GUAIFENEX PSE [Concomitant]
     Indication: RESPIRATORY TRACT CONGESTION
  16. SYMBICORT [Concomitant]
     Indication: BRONCHOSPASM
     Dosage: 2 PUFFS IN AM AND 2 PUFFS AT NIGHT
  17. ALBUTEROL [Concomitant]
     Indication: BRONCHOSPASM
     Dosage: 2 PUFFS EVERY 4-6 HOURS PRN
     Route: 055
  18. METHYLPREDNISOLONE ACETATE [Concomitant]
     Indication: NASAL SEPTUM DISORDER
     Dosage: TAPERED DOSE
     Dates: start: 20090213, end: 20090219

REACTIONS (3)
  - CONTUSION [None]
  - MUSCLE SPASMS [None]
  - MYALGIA [None]
